FAERS Safety Report 6111011-2 (Version None)
Quarter: 2009Q1

REPORT INFORMATION
  Report Type: 
  Country: None (occurrence: None)
  Receive Date: 20090311
  Receipt Date: 20090227
  Transmission Date: 20090719
  Serious: Yes (Other)
  Sender: FDA-Public Use
  Company Number: PHHY2009FR07246

PATIENT
  Sex: Female

DRUGS (2)
  1. CERTICAN [Suspect]
     Indication: LIVER TRANSPLANT
  2. MYFORTIC [Suspect]
     Indication: LIVER TRANSPLANT

REACTIONS (1)
  - ALTERED STATE OF CONSCIOUSNESS [None]
